FAERS Safety Report 17572021 (Version 2)
Quarter: 2020Q3

REPORT INFORMATION
  Report Type: Spontaneous
  Country: GB (occurrence: GB)
  Receive Date: 20200323
  Receipt Date: 20200709
  Transmission Date: 20201102
  Serious: Yes (Hospitalization, Other)
  Sender: FDA-Public Use
  Company Number: GB-MYLANLABS-2020M1018876

PATIENT
  Age: 64 Year
  Sex: Female

DRUGS (3)
  1. CLOZARIL [Suspect]
     Active Substance: CLOZAPINE
     Indication: SCHIZOPHRENIA
     Dosage: UNK
     Route: 048
     Dates: start: 20100330, end: 20200221
  2. CLOZARIL [Suspect]
     Active Substance: CLOZAPINE
     Dosage: EVENING DOSE
     Route: 048
     Dates: start: 20200625, end: 20200625
  3. CLOZARIL [Suspect]
     Active Substance: CLOZAPINE
     Dosage: EVENING DOSE RE?TITRATION
     Route: 048
     Dates: start: 20200629

REACTIONS (7)
  - Orthostatic hypotension [Unknown]
  - Unresponsive to stimuli [Unknown]
  - Leukocytosis [Unknown]
  - Pneumonia [Unknown]
  - Syncope [Unknown]
  - Mental disorder [Unknown]
  - Neutrophilia [Unknown]

NARRATIVE: CASE EVENT DATE: 20200217
